FAERS Safety Report 18406784 (Version 1)
Quarter: 2020Q4

REPORT INFORMATION
  Report Type: Spontaneous
  Country: FR (occurrence: FR)
  Receive Date: 20201020
  Receipt Date: 20201020
  Transmission Date: 20210114
  Serious: Yes (Life-Threatening, Other)
  Sender: FDA-Public Use
  Company Number: FR-MYLANLABS-2020M1087975

PATIENT
  Age: 61 Year
  Sex: Female

DRUGS (2)
  1. LAMOTRIGINE. [Suspect]
     Active Substance: LAMOTRIGINE
     Indication: PRODUCT USED FOR UNKNOWN INDICATION
     Dosage: 70 DOSAGE FORM, TOTAL
     Route: 048
     Dates: start: 20200917, end: 20200917
  2. BACLOFENE [Suspect]
     Active Substance: BACLOFEN
     Indication: PRODUCT USED FOR UNKNOWN INDICATION
     Dosage: 80 DOSAGE FORM, TOTAL
     Route: 048
     Dates: start: 20200917, end: 20200917

REACTIONS (9)
  - Acidosis [Recovered/Resolved]
  - Acute respiratory distress syndrome [Recovered/Resolved]
  - Tonic clonic movements [Recovered/Resolved]
  - Electrocardiogram QT prolonged [Recovered/Resolved]
  - Coma [Recovered/Resolved]
  - Acute kidney injury [Recovered/Resolved]
  - Haemodynamic instability [Recovered/Resolved]
  - Hypothermia [Recovered/Resolved]
  - Poisoning deliberate [Unknown]

NARRATIVE: CASE EVENT DATE: 20200917
